FAERS Safety Report 16375435 (Version 2)
Quarter: 2019Q2

REPORT INFORMATION
  Report Type: Spontaneous
  Country: ES (occurrence: ES)
  Receive Date: 20190531
  Receipt Date: 20190618
  Transmission Date: 20190711
  Serious: Yes (Death, Life-Threatening, Hospitalization, Other)
  Sender: FDA-Public Use
  Company Number: ES-AUROBINDO-AUR-APL-2019-029135

PATIENT

DRUGS (2)
  1. CAPECITABINE. [Suspect]
     Active Substance: CAPECITABINE
     Indication: ADENOCARCINOMA GASTRIC
     Dosage: 1800 MILLIGRAM, 12 HOURLY
     Route: 048
     Dates: start: 20140725, end: 20140808
  2. NERVINEX [Interacting]
     Active Substance: BRIVUDINE
     Indication: HERPES ZOSTER
     Dosage: 125 MILLIGRAM, ONCE A DAY
     Route: 048
     Dates: start: 20140804, end: 20140811

REACTIONS (7)
  - Mucosal inflammation [Fatal]
  - Aspergillus infection [Fatal]
  - Drug interaction [Fatal]
  - Herpes zoster [Unknown]
  - Systemic toxicity [Fatal]
  - Bronchopulmonary aspergillosis [Fatal]
  - Pancytopenia [Fatal]

NARRATIVE: CASE EVENT DATE: 201408
